FAERS Safety Report 8850361 (Version 1)
Quarter: 2012Q4

REPORT INFORMATION
  Report Type: 
  Country: US (occurrence: US)
  Receive Date: 20121019
  Receipt Date: 20121019
  Transmission Date: 20130627
  Serious: No
  Sender: FDA-Public Use
  Company Number: US-VERTEX PHARMACEUTICAL INC.-2012-022867

PATIENT
  Age: 24 None
  Sex: Male
  Weight: 129 kg

DRUGS (5)
  1. VX-950 [Suspect]
     Indication: HEPATITIS C
     Dosage: 3 pills every 12 hours, bid
     Route: 048
     Dates: start: 20121002
  2. RIBAVIRIN [Suspect]
     Indication: HEPATITIS C
     Dosage: 4 pills in am/ 3 pills in pm, qd
     Route: 048
     Dates: start: 20121002
  3. PEGASYS [Suspect]
     Indication: HEPATITIS C
     Dosage: 180 ?g, UNK
     Route: 058
     Dates: start: 20121002
  4. VITAMIN B12                        /00056201/ [Concomitant]
     Indication: SUPPLEMENTATION THERAPY
     Dosage: UNK, qd
     Dates: start: 20121002
  5. TYLENOL /00020001/ [Concomitant]
     Dosage: UNK, prn
     Route: 048

REACTIONS (7)
  - Insomnia [Not Recovered/Not Resolved]
  - Dizziness [Not Recovered/Not Resolved]
  - Restlessness [Not Recovered/Not Resolved]
  - Pyrexia [Not Recovered/Not Resolved]
  - Abdominal pain upper [Not Recovered/Not Resolved]
  - Decreased appetite [Not Recovered/Not Resolved]
  - Nausea [Not Recovered/Not Resolved]
